FAERS Safety Report 25242392 (Version 1)
Quarter: 2025Q2

REPORT INFORMATION
  Report Type: Spontaneous
  Country: US (occurrence: US)
  Receive Date: 20250427
  Receipt Date: 20250427
  Transmission Date: 20250716
  Serious: No
  Sender: ELI LILLY AND COMPANY
  Company Number: US-ELI_LILLY_AND_COMPANY-US202504015413

PATIENT
  Sex: Female

DRUGS (2)
  1. FORTEO [Suspect]
     Active Substance: TERIPARATIDE
     Indication: Product used for unknown indication
     Route: 065
     Dates: start: 20250319
  2. FORTEO [Suspect]
     Active Substance: TERIPARATIDE
     Indication: Product used for unknown indication
     Route: 065
     Dates: start: 20250319

REACTIONS (5)
  - Burning sensation [Unknown]
  - Peripheral swelling [Unknown]
  - Arthritis [Unknown]
  - Injection site bruising [Unknown]
  - Pain [Unknown]
